FAERS Safety Report 25712489 (Version 2)
Quarter: 2025Q3

REPORT INFORMATION
  Report Type: Report from Study
  Country: EU (occurrence: EU)
  Receive Date: 20250821
  Receipt Date: 20250904
  Transmission Date: 20251021
  Serious: Yes (Hospitalization, Other)
  Sender: NOVARTIS
  Company Number: EU-002147023-NVSC2025DE103942

PATIENT
  Sex: Male
  Weight: 106.4 kg

DRUGS (1)
  1. LEQVIO [Suspect]
     Active Substance: INCLISIRAN SODIUM
     Indication: Primary hypercholesterolaemia
     Route: 058
     Dates: start: 20240122

REACTIONS (7)
  - Cerebrovascular accident [Recovered/Resolved with Sequelae]
  - Nervous system disorder [Recovering/Resolving]
  - Musculoskeletal disorder [Recovering/Resolving]
  - Hemiparesis [Unknown]
  - Anisocoria [Unknown]
  - Epistaxis [Unknown]
  - Hypotension [Unknown]

NARRATIVE: CASE EVENT DATE: 20250411
